FAERS Safety Report 7902097-0 (Version None)
Quarter: 2011Q4

REPORT INFORMATION
  Report Type: 
  Country: None (occurrence: None)
  Receive Date: 20111108
  Receipt Date: 20111027
  Transmission Date: 20120403
  Serious: Yes (Hospitalization)
  Sender: FDA-Public Use
  Company Number: US-BAYER-2011-022575

PATIENT
  Age: 21 Year
  Sex: Female

DRUGS (3)
  1. LEXAPRO [Concomitant]
  2. ACYCLOVIR [Concomitant]
  3. YAZ [Suspect]
     Indication: ORAL CONTRACEPTION
     Dosage: UNK
     Route: 048
     Dates: start: 20090122, end: 20090331

REACTIONS (8)
  - EMOTIONAL DISTRESS [None]
  - CHEST PAIN [None]
  - FEAR OF DEATH [None]
  - PULMONARY EMBOLISM [None]
  - PAIN [None]
  - INJURY [None]
  - ANXIETY [None]
  - DYSPNOEA [None]
